FAERS Safety Report 7702395-X (Version None)
Quarter: 2011Q3

REPORT INFORMATION
  Report Type: 
  Country: None (occurrence: None)
  Receive Date: 20110822
  Receipt Date: 20110810
  Transmission Date: 20111222
  Serious: Yes (Hospitalization)
  Sender: FDA-Public Use
  Company Number: PHHY2011KR72941

PATIENT
  Age: 75 Year
  Sex: Female

DRUGS (12)
  1. PRAMIPEXOLE DIHYDROCHLORIDE [Suspect]
     Dosage: 0.75 MG/DAY
  2. CARBIDOPA + LEVODOPA [Concomitant]
     Dosage: 1 DF/DAY
  3. PRAMIPEXOLE DIHYDROCHLORIDE [Suspect]
     Dosage: 1.125 MG/DAY
  4. ALPRAZOLAM [Concomitant]
     Dosage: 0.375 MG, UNK
  5. STALEVO 100 [Concomitant]
     Indication: POSTURE ABNORMAL
     Dosage: 50 MG, TID
  6. PRAMIPEXOLE DIHYDROCHLORIDE [Suspect]
     Dosage: 0.375 MG/DAY
  7. GLIMEPIRIDE [Concomitant]
     Dosage: 2 MG, UNK
  8. AMANTADINE HCL [Concomitant]
     Dosage: 100 MG, UNK
  9. ASPIRIN [Concomitant]
     Indication: ANXIETY
     Dosage: 100 MG, UNK
  10. SERTRALINE HYDROCHLORIDE [Concomitant]
     Dosage: 50 MG, UNK
  11. ESCITALOPRAM [Concomitant]
     Dosage: 10 MG, UNK
  12. DOMPERIDONE [Concomitant]
     Dosage: 30 MG/DAY

REACTIONS (8)
  - INAPPROPRIATE ANTIDIURETIC HORMONE SECRETION [None]
  - ASTHENIA [None]
  - DELIRIUM [None]
  - FALL [None]
  - BLOOD CHLORIDE DECREASED [None]
  - MUSCLE RIGIDITY [None]
  - DYSARTHRIA [None]
  - HYPONATRAEMIA [None]
